FAERS Safety Report 18413912 (Version 1)
Quarter: 2020Q4

REPORT INFORMATION
  Report Type: Spontaneous
  Country: US (occurrence: US)
  Receive Date: 20201022
  Receipt Date: 20201022
  Transmission Date: 20210114
  Serious: No
  Sender: FDA-Public Use
  Company Number: NVSC2020US284598

PATIENT
  Sex: Male

DRUGS (1)
  1. VOLTAREN [Suspect]
     Active Substance: DICLOFENAC SODIUM
     Indication: MUSCULOSKELETAL CHEST PAIN
     Dosage: UNK (PUT IT ONCE)
     Route: 065
     Dates: start: 202010

REACTIONS (2)
  - Inappropriate schedule of product administration [Unknown]
  - Product administered at inappropriate site [Unknown]
